FAERS Safety Report 5737876-1 (Version None)
Quarter: 2008Q2

REPORT INFORMATION
  Report Type: 
  Country: None (occurrence: None)
  Receive Date: 20080512
  Receipt Date: 20080512
  Transmission Date: 20081010
  Serious: Yes (Life-Threatening, Hospitalization, Other)
  Sender: FDA-Public Use
  Company Number: None

PATIENT
  Sex: Female
  Weight: 90.7194 kg

DRUGS (2)
  1. TRIBUTILENE SULFATE TABLETS [Suspect]
     Indication: PREMATURE LABOUR
     Dosage: 1 TABLET  EVERY 4-6 HOURS   MOUTH
     Route: 048
     Dates: start: 20030101
  2. TRIBUTILENE SULFATE TABLETS [Suspect]
     Indication: PREMATURE LABOUR
     Dosage: 1 TABLET  EVERY 4-6 HOURS   MOUTH
     Route: 048
     Dates: start: 20070101

REACTIONS (2)
  - DRUG EXPOSURE DURING PREGNANCY [None]
  - PREGNANCY [None]
